FAERS Safety Report 7557030-0 (Version None)
Quarter: 2011Q2

REPORT INFORMATION
  Report Type: 
  Country: None (occurrence: None)
  Receive Date: 20110620
  Receipt Date: 20110607
  Transmission Date: 20111010
  Serious: Yes (Hospitalization, Other)
  Sender: FDA-Public Use
  Company Number: US-ROCHE-707790

PATIENT
  Sex: Female

DRUGS (4)
  1. DOCETAXEL [Suspect]
     Dosage: OVER 1 HOUR ON DAY 1
     Route: 042
     Dates: start: 20100126
  2. CARBOPLATIN [Suspect]
     Dosage: NON SURGICAL PATIENT, CYCLE: 21 DAYS, REPORTED AS DRUG GIVEN AS AUC 5 OVER 30 MINUTES ON DAY 1.
     Route: 042
     Dates: start: 20100126
  3. BEVACIZUMAB [Suspect]
     Dosage: NON SURGICAL PATIENT, CYCLE: 21 DAYS, REPORTED AS DRUG GIVEN OVER 30-90 MINUTES ON DAY 1.
     Route: 042
     Dates: start: 20100126
  4. PACLITAXEL [Suspect]
     Dosage: NON SURGICAL PATIENT, CYCLE: 21 DAYS, REPORTED AS DRUG GIVEN OVER 3 HOURS ON DAY 1.
     Route: 042
     Dates: start: 20100126

REACTIONS (4)
  - ILEAL FISTULA [None]
  - ENTEROCUTANEOUS FISTULA [None]
  - HYPERGLYCAEMIA [None]
  - WOUND COMPLICATION [None]
